FAERS Safety Report 6853982-2 (Version None)
Quarter: 2010Q3

REPORT INFORMATION
  Report Type: 
  Country: None (occurrence: None)
  Receive Date: 20100717
  Receipt Date: 20071226
  Transmission Date: 20110219
  Serious: No
  Sender: FDA-Public Use
  Company Number: US-PFIZER INC-2008000203

PATIENT
  Sex: Female
  Weight: 65.8 kg

DRUGS (7)
  1. CHANTIX [Suspect]
     Indication: SMOKING CESSATION THERAPY
     Dates: start: 20071225
  2. VALSARTAN [Concomitant]
     Indication: BLOOD PRESSURE ABNORMAL
  3. VYTORIN [Concomitant]
     Indication: BLOOD CHOLESTEROL ABNORMAL
  4. ACETYLSALICYLIC ACID [Concomitant]
  5. MULTI-VITAMINS [Concomitant]
  6. XANAX [Concomitant]
     Indication: ANXIETY
  7. PENICILLIN NOS [Concomitant]

REACTIONS (10)
  - CRYING [None]
  - DISTURBANCE IN ATTENTION [None]
  - FEELING ABNORMAL [None]
  - FEELING JITTERY [None]
  - INSOMNIA [None]
  - JUDGEMENT IMPAIRED [None]
  - MENTAL IMPAIRMENT [None]
  - MUSCULOSKELETAL PAIN [None]
  - NECK PAIN [None]
  - NERVOUSNESS [None]
